FAERS Safety Report 7520721-1 (Version None)
Quarter: 2011Q2

REPORT INFORMATION
  Report Type: 
  Country: None (occurrence: None)
  Receive Date: 20110603
  Receipt Date: 20101123
  Transmission Date: 20111010
  Serious: Yes (Hospitalization, Other)
  Sender: FDA-Public Use
  Company Number: US-BAYER-200818730NA

PATIENT
  Age: 35 Year
  Sex: Female

DRUGS (5)
  1. BETASERON [Suspect]
     Route: 058
     Dates: start: 20080408
  2. BETASERON [Suspect]
     Dosage: BETAJECT
     Route: 058
     Dates: start: 20090909
  3. NEURONTIN [Concomitant]
  4. BETASERON [Suspect]
     Indication: MULTIPLE SCLEROSIS
     Route: 058
     Dates: start: 20070604, end: 20080403
  5. BETASERON [Suspect]
     Route: 058
     Dates: end: 20090714

REACTIONS (25)
  - INJECTION SITE CELLULITIS [None]
  - OVARIAN CYST [None]
  - INJECTION SITE ERYTHEMA [None]
  - PAIN [None]
  - FALL [None]
  - MALAISE [None]
  - OPEN WOUND [None]
  - PYREXIA [None]
  - ABDOMINAL PAIN LOWER [None]
  - CYSTITIS [None]
  - LOSS OF CONSCIOUSNESS [None]
  - HEAD INJURY [None]
  - PAIN OF SKIN [None]
  - OVARIAN CYST RUPTURED [None]
  - INJECTION SITE PAIN [None]
  - CELLULITIS [None]
  - SKIN WARM [None]
  - INJECTION SITE MASS [None]
  - SKIN SWELLING [None]
  - ABDOMINAL PAIN [None]
  - NEPHROLITHIASIS [None]
  - INJECTION SITE INFECTION [None]
  - POST PROCEDURAL DISCHARGE [None]
  - INJECTION SITE RASH [None]
  - INJECTION SITE NECROSIS [None]
